FAERS Safety Report 9349167 (Version 1)
Quarter: 2013Q2

REPORT INFORMATION
  Report Type: Spontaneous
  Country: BR (occurrence: BR)
  Receive Date: 20130614
  Receipt Date: 20130614
  Transmission Date: 20140414
  Serious: Yes (Other)
  Sender: FDA-Public Use
  Company Number: BR-ELI_LILLY_AND_COMPANY-BR201306001809

PATIENT
  Age: 65 Year
  Sex: Female
  Weight: 67 kg

DRUGS (11)
  1. HUMULIN NPH [Suspect]
     Indication: TYPE 2 DIABETES MELLITUS
     Dosage: 36 IU, EACH MORNING
     Route: 058
     Dates: start: 1998
  2. HUMULIN NPH [Suspect]
     Dosage: 16 IU, EACH EVENING
     Route: 058
     Dates: start: 1998
  3. HUMULIN NPH [Suspect]
     Indication: TYPE 2 DIABETES MELLITUS
     Dosage: UNK, UNKNOWN
     Route: 065
     Dates: start: 201304, end: 201305
  4. AMLO                               /00972402/ [Concomitant]
     Indication: BLOOD PRESSURE
     Dosage: UNK UNK, QD
     Route: 065
     Dates: start: 2003
  5. DIOVAN [Concomitant]
     Indication: BLOOD PRESSURE
     Dosage: UNK UNK, QD
     Route: 065
     Dates: start: 2003
  6. DILACORON [Concomitant]
     Dosage: UNK, EACH MORNING
     Route: 065
  7. DILACORON [Concomitant]
     Dosage: UNK, EACH EVENING
     Route: 065
  8. GALVUS MET [Concomitant]
     Indication: CARDIAC DISORDER
     Dosage: 50 MG, EACH MORNING
     Route: 065
     Dates: start: 201304
  9. GALVUS MET [Concomitant]
     Dosage: 50 MG, EACH EVENING
     Route: 065
     Dates: start: 201304
  10. AMLODIPINE [Concomitant]
     Indication: BLOOD PRESSURE
     Dosage: UNK, UNKNOWN
     Route: 065
     Dates: start: 2012
  11. AAS [Concomitant]
     Indication: CARDIOVASCULAR DISORDER
     Dosage: UNK, QD
     Route: 065
     Dates: start: 2011

REACTIONS (5)
  - Infarction [Recovered/Resolved]
  - Carotid artery occlusion [Recovered/Resolved]
  - Cerebrovascular accident [Unknown]
  - Nervous system disorder [Not Recovered/Not Resolved]
  - Memory impairment [Not Recovered/Not Resolved]
